FAERS Safety Report 12749827 (Version 4)
Quarter: 2016Q4

REPORT INFORMATION
  Report Type: Spontaneous
  Country: JP (occurrence: JP)
  Receive Date: 20160916
  Receipt Date: 20161128
  Transmission Date: 20170207
  Serious: Yes (Hospitalization, Other)
  Sender: FDA-Public Use
  Company Number: JP-GLAXOSMITHKLINE-JP2016JPN133146

PATIENT
  Age: 53 Year
  Sex: Male

DRUGS (5)
  1. HEPSERA [Suspect]
     Active Substance: ADEFOVIR DIPIVOXIL
     Indication: HEPATITIS B
     Dosage: UNK, QOD
     Route: 048
     Dates: start: 201401, end: 201508
  2. ZEFIX [Suspect]
     Active Substance: LAMIVUDINE
     Dosage: 50 MG, QD
     Route: 048
     Dates: start: 201608
  3. HEPSERA [Suspect]
     Active Substance: ADEFOVIR DIPIVOXIL
     Dosage: 10 MG, QOD
     Route: 048
  4. ZEFIX [Suspect]
     Active Substance: LAMIVUDINE
     Indication: HEPATITIS B
     Dosage: 100 MG, 1D
     Route: 048
     Dates: start: 201401, end: 201608
  5. TENOZET [Suspect]
     Active Substance: TENOFOVIR DISOPROXIL FUMARATE
     Indication: HEPATITIS B
     Dosage: 300 MG, QD
     Route: 048
     Dates: start: 201508, end: 201609

REACTIONS (4)
  - Fanconi syndrome acquired [Recovering/Resolving]
  - Renal impairment [Unknown]
  - Drug effect incomplete [Unknown]
  - Arthralgia [Unknown]

NARRATIVE: CASE EVENT DATE: 201607
